FAERS Safety Report 9909583 (Version 2)
Quarter: 2014Q1

REPORT INFORMATION
  Report Type: Spontaneous
  Country: NO (occurrence: NO)
  Receive Date: 20140219
  Receipt Date: 20140310
  Transmission Date: 20141002
  Serious: Yes (Other)
  Sender: FDA-Public Use
  Company Number: NO-PFIZER INC-2014047040

PATIENT
  Age: 49 Year
  Sex: Female

DRUGS (2)
  1. ZOLOFT [Suspect]
     Indication: DEPRESSION
     Dosage: 200 UG, UNK
     Route: 048
     Dates: start: 200605, end: 20131220
  2. ZOLOFT [Suspect]
     Indication: ANXIETY

REACTIONS (2)
  - Blood cholesterol increased [Recovering/Resolving]
  - Blood homocysteine increased [Recovering/Resolving]
